FAERS Safety Report 4824534-0 (Version None)
Quarter: 2005Q4

REPORT INFORMATION
  Report Type: 
  Country: None (occurrence: None)
  Receive Date: 20051108
  Receipt Date: 20051108
  Transmission Date: 20060501
  Serious: Yes (Hospitalization)
  Sender: FDA-Public Use
  Company Number: None

PATIENT
  Sex: Male

DRUGS (9)
  1. CLOFARABINE [Suspect]
     Indication: LYMPHOMA
     Dosage: 4 MG/M2 DAYS 1-5 EVERY 28 DAYS
     Dates: start: 20050926
  2. CLOFARABINE [Suspect]
     Indication: LYMPHOMA
     Dosage: 4 MG/M2 DAYS 1-5 EVERY 28 DAYS
     Dates: start: 20051024
  3. FLOMAX [Concomitant]
  4. FUROSAMIDE [Concomitant]
  5. KETOCONAZOLE [Concomitant]
  6. DIGITEK [Concomitant]
  7. FLOCONAZOLE [Concomitant]
  8. TRIMETHOPRIM + SULFAMETHOXAZOLE [Concomitant]
  9. ASPIRIN [Concomitant]

REACTIONS (2)
  - ANAEMIA [None]
  - FEBRILE NEUTROPENIA [None]
